FAERS Safety Report 7610872-5 (Version None)
Quarter: 2011Q3

REPORT INFORMATION
  Report Type: 
  Country: None (occurrence: None)
  Receive Date: 20110715
  Receipt Date: 20110711
  Transmission Date: 20111222
  Serious: Yes (Other)
  Sender: FDA-Public Use
  Company Number: BG-BRISTOL-MYERS SQUIBB COMPANY-15856776

PATIENT
  Sex: Female

DRUGS (2)
  1. CYCLOPHOSPHAMIDE [Suspect]
     Indication: SYSTEMIC SCLEROSIS
     Dosage: RECEIVED 25 COURSES OF PULSE THERAPY BETWEEN 2001-2003.
  2. METHYLPREDNISOLONE [Suspect]
     Indication: SYSTEMIC SCLEROSIS
     Dosage: RECEIVED 25 COURSES OF PULSE THERAPY BETWEEN 2001-2003.

REACTIONS (1)
  - DISSEMINATED TUBERCULOSIS [None]
